FAERS Safety Report 7668319-9 (Version None)
Quarter: 2011Q3

REPORT INFORMATION
  Report Type: 
  Country: None (occurrence: None)
  Receive Date: 20110808
  Receipt Date: 20110725
  Transmission Date: 20111222
  Serious: No
  Sender: FDA-Public Use
  Company Number: US-B.I. PHARMACEUTICALS,INC./RIDGEFIELD-2011-BP-16392BP

PATIENT

DRUGS (9)
  1. LORATADINE [Concomitant]
  2. PRADAXA [Suspect]
     Indication: ATRIAL FIBRILLATION
     Dosage: 300 MG
     Route: 048
     Dates: start: 20110211
  3. FISH OIL [Concomitant]
     Dosage: 2000 MG
  4. CARVEDILOL [Concomitant]
     Indication: CARDIAC FAILURE CONGESTIVE
  5. PRADAXA [Suspect]
     Indication: THROMBOSIS
  6. FLUTICASONE PROPIONATE [Concomitant]
     Dosage: 50 MG
  7. SIMVASTATIN [Concomitant]
     Dosage: 20 MG
  8. FUROSEMIDE [Concomitant]
     Dosage: 40 MG
  9. STOOL SOFTENER [Concomitant]

REACTIONS (1)
  - HEADACHE [None]
